FAERS Safety Report 9746233 (Version 1)
Quarter: 2013Q4

REPORT INFORMATION
  Report Type: Spontaneous
  Country: US (occurrence: US)
  Receive Date: 20131211
  Receipt Date: 20131211
  Transmission Date: 20140711
  Serious: Yes (Other)
  Sender: FDA-Public Use
  Company Number: US-PFIZER INC-2013349694

PATIENT
  Age: 51 Year
  Sex: Male

DRUGS (10)
  1. LIPITOR [Suspect]
     Dosage: UNK
  2. LYRICA [Suspect]
     Dosage: 1 CAPSULE (75 MG), TWO TIMES A DAY
  3. AMIODARONE [Concomitant]
     Dosage: UNK
  4. ASPIRIN [Concomitant]
     Dosage: UNK
  5. GABAPENTIN [Concomitant]
     Dosage: UNK
  6. HYDROCODONE [Concomitant]
     Dosage: UNK
  7. TOPROL [Concomitant]
     Dosage: UNK
  8. NEUPRO [Concomitant]
     Dosage: UNK
  9. PLAVIX [Concomitant]
     Dosage: UNK
  10. SENNA [Concomitant]
     Dosage: UNK

REACTIONS (1)
  - Angiopathy [Unknown]
